FAERS Safety Report 6676818-1 (Version None)
Quarter: 2010Q2

REPORT INFORMATION
  Report Type: 
  Country: None (occurrence: None)
  Receive Date: 20100409
  Receipt Date: 20100409
  Transmission Date: 20101027
  Serious: Yes (Disabling)
  Sender: FDA-Public Use
  Company Number: None

PATIENT
  Age: 32 Year
  Sex: Female
  Weight: 59.4212 kg

DRUGS (2)
  1. ACTONEL [Suspect]
     Indication: OSTEOPOROSIS
     Dosage: 150 MGM MONTHLY ORAL
     Route: 048
     Dates: start: 20081001
  2. ACTONEL [Suspect]
     Indication: OSTEOPOROSIS
     Dosage: 150 MGM MONTHLY ORAL
     Route: 048
     Dates: start: 20090301

REACTIONS (5)
  - FALL [None]
  - FRUSTRATION [None]
  - HYPOAESTHESIA [None]
  - MUSCULAR WEAKNESS [None]
  - WALKING AID USER [None]
